FAERS Safety Report 4345790-1 (Version None)
Quarter: 2004Q2

REPORT INFORMATION
  Report Type: 
  Country: None (occurrence: None)
  Receive Date: 20040421
  Receipt Date: 20040409
  Transmission Date: 20050107
  Serious: Yes (Hospitalization)
  Sender: FDA-Public Use
  Company Number: 2004-01518

PATIENT
  Age: 11 Year
  Sex: Female

DRUGS (2)
  1. DOXYCYCLINE HYCLATE (WATSON LABORATORIES) (DOXYCYCLINE HYCLATE) UNKNOW [Suspect]
     Indication: BRUCELLOSIS
     Dosage: 7 MG/KG/DAY, ORAL
     Route: 048
  2. STREPTOMYCIN [Concomitant]

REACTIONS (1)
  - AUTOIMMUNE HEPATITIS [None]
